FAERS Safety Report 5050210-8 (Version None)
Quarter: 2006Q3

REPORT INFORMATION
  Report Type: 
  Country: None (occurrence: None)
  Receive Date: 20060713
  Receipt Date: 20050615
  Transmission Date: 20061208
  Serious: Yes (Life-Threatening, Hospitalization)
  Sender: FDA-Public Use
  Company Number: US-BRISTOL-MYERS SQUIBB COMPANY-13011804

PATIENT
  Age: 57 Year
  Sex: Female
  Weight: 59 kg

DRUGS (2)
  1. SINEMET CR [Suspect]
     Indication: PARKINSON'S DISEASE
     Route: 048
     Dates: start: 19930101
  2. ELDEPRYL [Suspect]
     Indication: PARKINSON'S DISEASE
     Route: 048
     Dates: start: 19930101

REACTIONS (2)
  - CONVULSION [None]
  - SYNCOPE [None]
